FAERS Safety Report 16705221 (Version 1)
Quarter: 2019Q3

REPORT INFORMATION
  Report Type: Spontaneous
  Country: US (occurrence: US)
  Receive Date: 20190815
  Receipt Date: 20190815
  Transmission Date: 20191004
  Serious: Yes (Hospitalization)
  Sender: FDA-Public Use
  Company Number: US-009507513-1908USA005313

PATIENT
  Sex: Male

DRUGS (2)
  1. PROSCAR [Suspect]
     Active Substance: FINASTERIDE
     Indication: BENIGN PROSTATIC HYPERPLASIA
     Dosage: 1 TABLET EVERY DAY
     Route: 048
     Dates: start: 2014
  2. OXYCODONE [Concomitant]
     Active Substance: OXYCODONE
     Dosage: 5MG  L TABLET BEFORE THERAPY
     Route: 048

REACTIONS (1)
  - Joint injury [Recovering/Resolving]
